FAERS Safety Report 4684313-4 (Version None)
Quarter: 2005Q2

REPORT INFORMATION
  Report Type: 
  Country: None (occurrence: None)
  Receive Date: 20050607
  Receipt Date: 20050531
  Transmission Date: 20051028
  Serious: Yes (Hospitalization)
  Sender: FDA-Public Use
  Company Number: 2005UW08432

PATIENT
  Age: 24578 Day
  Sex: Male
  Weight: 47.7 kg

DRUGS (18)
  1. IRESSA [Suspect]
     Indication: SQUAMOUS CELL CARCINOMA
     Route: 048
     Dates: start: 20050127, end: 20050402
  2. DOCETAXEL [Suspect]
     Indication: SQUAMOUS CELL CARCINOMA
     Dosage: 86 MG TOTAL DOSE
     Route: 042
     Dates: start: 20050127, end: 20050217
  3. DOCETAXEL [Suspect]
     Route: 042
     Dates: start: 20050317, end: 20050331
  4. RADIATION THERAPY [Suspect]
     Indication: SQUAMOUS CELL CARCINOMA
     Dosage: 1.8 GY/TREATMENT
     Dates: start: 20050317, end: 20050402
  5. FLUOROURACIL [Suspect]
     Indication: SQUAMOUS CELL CARCINOMA
     Route: 042
     Dates: start: 20050129, end: 20050310
  6. CARBOPLATIN [Suspect]
     Indication: SQUAMOUS CELL CARCINOMA
     Dosage: 5 AUC
     Route: 042
     Dates: start: 20050127, end: 20050217
  7. PERCOCET [Concomitant]
     Indication: PAIN
     Dosage: 10/650 MG
     Dates: start: 20050110, end: 20050217
  8. DECADRON [Concomitant]
     Indication: PREMEDICATION
     Dates: start: 20050110
  9. KYTRIL [Concomitant]
     Indication: NAUSEA
     Dosage: PRN
     Dates: start: 20050110
  10. ZOFRAN [Concomitant]
     Indication: NAUSEA
     Dates: start: 20050202
  11. DURAGESIC-100 [Concomitant]
     Indication: PAIN
     Route: 062
     Dates: start: 20050331, end: 20050402
  12. SANDOSTATIN [Concomitant]
     Indication: DIARRHOEA
     Dates: start: 20050405, end: 20050405
  13. ZITHROMAX [Concomitant]
     Indication: PNEUMONIA
     Dates: start: 20050402, end: 20050405
  14. PREVACID [Concomitant]
     Indication: REFLUX OESOPHAGITIS
     Route: 048
     Dates: start: 20050403
  15. ARICEPT [Concomitant]
     Indication: DEMENTIA
     Dates: start: 20050406
  16. LEVAQUIN [Concomitant]
     Indication: PNEUMONIA
     Dates: start: 20050406, end: 20050412
  17. LOMOTIL [Concomitant]
     Dosage: 1 TO 2 TABS Q4H PRN
     Route: 048
     Dates: start: 20050202
  18. COMPAZINE [Concomitant]
     Dosage: PRN
     Dates: start: 20050202

REACTIONS (8)
  - ANAEMIA [None]
  - BLOOD POTASSIUM INCREASED [None]
  - CONVULSION [None]
  - DEHYDRATION [None]
  - DEMENTIA [None]
  - DIARRHOEA [None]
  - ELECTROLYTE IMBALANCE [None]
  - HYPOKALAEMIA [None]
